FAERS Safety Report 7592064-1 (Version None)
Quarter: 2011Q3

REPORT INFORMATION
  Report Type: 
  Country: None (occurrence: None)
  Receive Date: 20110705
  Receipt Date: 20110705
  Transmission Date: 20111222
  Serious: No
  Sender: FDA-Public Use
  Company Number: None

PATIENT
  Sex: Female

DRUGS (1)
  1. ENBREL [Suspect]
     Indication: POLYARTHRITIS
     Dosage: 50MG QW SQ
     Route: 058
     Dates: start: 20110406, end: 20110624

REACTIONS (3)
  - EPISTAXIS [None]
  - MIGRAINE [None]
  - RECTAL HAEMORRHAGE [None]
